FAERS Safety Report 6243245-0 (Version None)
Quarter: 2009Q2

REPORT INFORMATION
  Report Type: 
  Country: None (occurrence: None)
  Receive Date: 20090622
  Receipt Date: 20090622
  Transmission Date: 20091009
  Serious: Yes (Other)
  Sender: FDA-Public Use
  Company Number: None

PATIENT
  Sex: Female
  Weight: 76.2043 kg

DRUGS (11)
  1. LIPITOR [Suspect]
     Indication: HYPERLIPIDAEMIA
     Dates: start: 20090505, end: 20090520
  2. HYDROCHLOROTHIAZIDE [Concomitant]
  3. ATENOLOL [Concomitant]
  4. BUSPAR [Concomitant]
  5. DIOVAN [Concomitant]
  6. DARVOCET [Concomitant]
  7. HEMATOGEN [Concomitant]
  8. METFORMIN HCL [Concomitant]
  9. NIFEDIPINE [Concomitant]
  10. NITRO-DUR [Concomitant]
  11. RANITIDINE [Concomitant]

REACTIONS (1)
  - HAEMOLYTIC ANAEMIA [None]
